FAERS Safety Report 19460449 (Version 1)
Quarter: 2021Q2

REPORT INFORMATION
  Report Type: Spontaneous
  Country: CA (occurrence: CA)
  Receive Date: 20210625
  Receipt Date: 20210625
  Transmission Date: 20210717
  Serious: Yes (Other)
  Sender: FDA-Public Use
  Company Number: CA-AUROBINDO-AUR-APL-2021-026415

PATIENT
  Age: 87 Year
  Sex: Male
  Weight: 104 kg

DRUGS (1)
  1. OLMESARTAN [Suspect]
     Active Substance: OLMESARTAN
     Indication: HYPERTENSION
     Dosage: 40 MILLIGRAM, ONCE A DAY
     Route: 048

REACTIONS (4)
  - Cutaneous vasculitis [Unknown]
  - Palpable purpura [Unknown]
  - Product substitution issue [Unknown]
  - Type IV hypersensitivity reaction [Unknown]
